FAERS Safety Report 8563877 (Version 2)
Quarter: 2012Q4

REPORT INFORMATION
  Report Type: 
  Country: US (occurrence: US)
  Receive Date: 20120515
  Receipt Date: 20120830
  Transmission Date: 20130627
  Serious: Yes (Hospitalization, Other)
  Sender: FDA-Public Use
  Company Number: US-ELI_LILLY_AND_COMPANY-US201204006608

PATIENT
  Age: 54 Year
  Sex: Female

DRUGS (24)
  1. FORTEO [Suspect]
     Indication: OSTEOPOROSIS
     Dosage: 20 ug, qd
     Route: 058
     Dates: start: 20120424
  2. FORTEO [Suspect]
     Dosage: 20 ug, qd
     Dates: end: 20120426
  3. PRIMIDONE [Concomitant]
  4. TOPAMAX [Concomitant]
  5. RANEXA [Concomitant]
  6. ULORIC [Concomitant]
  7. ZOLOFT [Concomitant]
  8. HYDROXYZINE [Concomitant]
  9. NEXIUM [Concomitant]
  10. ZOCOR [Concomitant]
  11. ZAROXOLYN [Concomitant]
  12. LASIX [Concomitant]
  13. DEMEX [Concomitant]
  14. VITAMIN B6 [Concomitant]
  15. SPIRIVA [Concomitant]
  16. PROVENTIL                          /00139501/ [Concomitant]
  17. ALBUTEROL [Concomitant]
  18. POTASSIUM CHLORIDE [Concomitant]
  19. NITROGLYCERIN [Concomitant]
     Dosage: UNK, prn
  20. ALDACTONE [Concomitant]
  21. HYDROCODONE [Concomitant]
  22. VESICARE [Concomitant]
  23. OXYGEN [Concomitant]
     Dosage: 2 l, UNK
  24. ZANAFLEX [Concomitant]

REACTIONS (15)
  - Upper limb fracture [Unknown]
  - Fall [Unknown]
  - Pruritus [Unknown]
  - Formication [Unknown]
  - Feeling abnormal [Unknown]
  - Fall [Unknown]
  - Back injury [Unknown]
  - Skin injury [Unknown]
  - Incorrect storage of drug [Unknown]
  - Injection site rash [Unknown]
  - Injection site urticaria [Recovered/Resolved]
  - Injection site erythema [Recovered/Resolved]
  - Rash [Not Recovered/Not Resolved]
  - Dizziness [Recovered/Resolved]
  - Vomiting [Recovered/Resolved]
